FAERS Safety Report 16461750 (Version 1)
Quarter: 2019Q2

REPORT INFORMATION
  Report Type: Spontaneous
  Country: US (occurrence: US)
  Receive Date: 20190621
  Receipt Date: 20190621
  Transmission Date: 20190711
  Serious: No
  Sender: FDA-Public Use
  Company Number: US-TEVA-2019-US-1064015

PATIENT

DRUGS (1)
  1. VENLAFAXINE HYDROCHLORIDE. [Suspect]
     Active Substance: VENLAFAXINE HYDROCHLORIDE
     Dosage: BOTTLE 90
     Route: 065

REACTIONS (4)
  - Product contamination physical [Unknown]
  - Product packaging quantity issue [Unknown]
  - Product quality issue [Unknown]
  - Wrong technique in product usage process [Unknown]
